FAERS Safety Report 7796039-9 (Version None)
Quarter: 2011Q4

REPORT INFORMATION
  Report Type: 
  Country: None (occurrence: None)
  Receive Date: 20111004
  Receipt Date: 20110928
  Transmission Date: 20120403
  Serious: Yes (Other)
  Sender: FDA-Public Use
  Company Number: US-AMGEN-USASP2011047959

PATIENT
  Age: 81 Year
  Sex: Male
  Weight: 77.551 kg

DRUGS (8)
  1. BUTALBITAL ACETAMINOPHEN AND CAFFEINE [Concomitant]
     Dosage: UNK
     Route: 048
     Dates: start: 20110415
  2. MECLIZINE                          /00072801/ [Concomitant]
     Dosage: 12.5 MG, TID
     Route: 048
     Dates: start: 20110415
  3. PROCRIT [Suspect]
     Indication: PRODUCT USED FOR UNKNOWN INDICATION
     Dosage: 30000 IU, UNK
     Route: 058
     Dates: start: 20110527, end: 20110923
  4. NPLATE [Suspect]
     Indication: IDIOPATHIC THROMBOCYTOPENIC PURPURA
     Dosage: 120 MUG, QWK
     Route: 058
     Dates: start: 20110819, end: 20110923
  5. METOZOLV [Concomitant]
     Dosage: 5 MG, BID
     Dates: start: 20110429
  6. METHADONE HCL [Concomitant]
     Dosage: 2.5 MG, PRN
     Route: 048
     Dates: start: 20110201
  7. NPLATE [Suspect]
     Dosage: 80 MUG, QWK
     Route: 058
     Dates: start: 20110211, end: 20110610
  8. NPLATE [Suspect]
     Dosage: 100 MUG, QWK
     Route: 058
     Dates: start: 20110617, end: 20110812

REACTIONS (2)
  - PLATELET COUNT DECREASED [None]
  - THERAPEUTIC RESPONSE DECREASED [None]
